FAERS Safety Report 5064059-3 (Version None)
Quarter: 2006Q3

REPORT INFORMATION
  Report Type: 
  Country: None (occurrence: None)
  Receive Date: 20060706
  Receipt Date: 20060316
  Transmission Date: 20061208
  Serious: No
  Sender: FDA-Public Use
  Company Number: 200611598BWH

PATIENT
  Age: 74 Year
  Sex: Male

DRUGS (4)
  1. LEVITRA [Suspect]
     Indication: ERECTILE DYSFUNCTION
     Dosage: 10 MG, ONCE
     Dates: start: 20060315
  2. NAPROXEN SODIUM [Concomitant]
  3. WELLBUTRIN [Concomitant]
  4. LITHIUM [Concomitant]

REACTIONS (1)
  - DIZZINESS [None]
